FAERS Safety Report 18756510 (Version 1)
Quarter: 2021Q1

REPORT INFORMATION
  Report Type: Spontaneous
  Country: IT (occurrence: IT)
  Receive Date: 20210119
  Receipt Date: 20210119
  Transmission Date: 20210419
  Serious: Yes (Hospitalization, Other)
  Sender: FDA-Public Use
  Company Number: IT-PFIZER INC-2021027214

PATIENT
  Age: 51 Year
  Sex: Female

DRUGS (6)
  1. NOAN [Suspect]
     Active Substance: DIAZEPAM
     Dosage: 25 MG, SINGLE (TOTAL)
     Route: 048
     Dates: start: 20210103, end: 20210103
  2. ENTUMIN [Suspect]
     Active Substance: CLOTHIAPINE
     Dosage: 200 MG, SINGLE (TOTAL)
     Route: 048
     Dates: start: 20210103, end: 20210103
  3. DEPAKIN [Suspect]
     Active Substance: VALPROATE SODIUM
     Dosage: 5 DF, SINGLE (TOTAL)
     Route: 048
     Dates: start: 20210103, end: 20210103
  4. OLANZAPINE. [Suspect]
     Active Substance: OLANZAPINE
     Dosage: 5 DF, SINGLE (TOTAL)
     Route: 048
     Dates: start: 20210103, end: 20210103
  5. ZOLOFT [Suspect]
     Active Substance: SERTRALINE HYDROCHLORIDE
     Dosage: 5 DF, SINGLE (TOTAL)
     Route: 048
     Dates: start: 20210103, end: 20210103
  6. RIVOTRIL [Suspect]
     Active Substance: CLONAZEPAM
     Dosage: 5 DF, SINGLE (TOTAL)
     Route: 048
     Dates: start: 20210103, end: 20210103

REACTIONS (4)
  - Depressed level of consciousness [Recovering/Resolving]
  - Suicide attempt [Unknown]
  - Intentional overdose [Recovering/Resolving]
  - Ataxia [Recovering/Resolving]

NARRATIVE: CASE EVENT DATE: 20210103
